FAERS Safety Report 21764327 (Version 1)
Quarter: 2022Q4

REPORT INFORMATION
  Report Type: Report from Study
  Country: US (occurrence: US)
  Receive Date: 20221222
  Receipt Date: 20221222
  Transmission Date: 20230113
  Serious: Yes (Death)
  Sender: FDA-Public Use
  Company Number: US-ABBVIE-4246104

PATIENT
  Sex: Male

DRUGS (1)
  1. VENCLEXTA [Suspect]
     Active Substance: VENETOCLAX
     Indication: Mantle cell lymphoma
     Dosage: FORM STRENGTH 100 MILLIGRAM?TAKE 4 TABLETS BY MOUTH ONCE DAILY WITH FOOD AND WATER AT THE SAME TI...
     Route: 048

REACTIONS (1)
  - Death [Fatal]
